FAERS Safety Report 5055247-0 (Version None)
Quarter: 2006Q3

REPORT INFORMATION
  Report Type: 
  Country: None (occurrence: None)
  Receive Date: 20060719
  Receipt Date: 20060712
  Transmission Date: 20061208
  Serious: Yes (Other)
  Sender: FDA-Public Use
  Company Number: AU-BRISTOL-MYERS SQUIBB COMPANY-13439047

PATIENT
  Sex: Female

DRUGS (1)
  1. SERZONE [Suspect]
     Dates: end: 20000101

REACTIONS (2)
  - GASTROINTESTINAL DISORDER [None]
  - NEOPLASM MALIGNANT [None]
